FAERS Safety Report 4323719-X (Version None)
Quarter: 2004Q1

REPORT INFORMATION
  Report Type: 
  Country: None (occurrence: None)
  Receive Date: 20040323
  Receipt Date: 20040308
  Transmission Date: 20041129
  Serious: Yes (Hospitalization)
  Sender: FDA-Public Use
  Company Number: S04-GER-01086-01

PATIENT
  Age: 29 Year
  Sex: Female

DRUGS (3)
  1. CIPRAMIL (CITALOPRAM HYDROBROMIDE) [Suspect]
     Indication: DEPRESSION
     Dosage: 30 MG QD PO
     Route: 048
     Dates: start: 20020301
  2. CIPRAMIL (CITALOPRAM HYDROBROMIDE) [Suspect]
     Indication: DEPRESSION
     Dosage: 20 MG QD PO
     Route: 048
     Dates: start: 20030515
  3. NORTRILEN ^PROMONTA LUNDBECK^ (NORTRIPTYLINE HYDROCHLORIDE) [Concomitant]

REACTIONS (5)
  - ABORTION SPONTANEOUS [None]
  - CAESAREAN SECTION [None]
  - COMPLICATIONS OF MATERNAL EXPOSURE TO THERAPEUTIC DRUGS [None]
  - FOETAL MALPOSITION [None]
  - MATERNAL DRUGS AFFECTING FOETUS [None]
